FAERS Safety Report 7061741-3 (Version None)
Quarter: 2010Q4

REPORT INFORMATION
  Report Type: 
  Country: None (occurrence: None)
  Receive Date: 20101026
  Receipt Date: 20101013
  Transmission Date: 20110411
  Serious: Yes (Hospitalization)
  Sender: FDA-Public Use
  Company Number: US-ELI_LILLY_AND_COMPANY-US201010003344

PATIENT
  Sex: Male

DRUGS (8)
  1. GEMCITABINE HCL [Suspect]
     Indication: PANCREATIC CARCINOMA
     Dosage: 1000 MG/M2 (1830MG), UNK
     Route: 065
     Dates: start: 20100901
  2. LORTAB [Concomitant]
     Indication: PAIN
     Route: 048
     Dates: start: 20100809
  3. ZOFRAN [Concomitant]
     Indication: PROPHYLAXIS OF NAUSEA AND VOMITING
     Route: 048
     Dates: start: 20100809
  4. COMPAZINE [Concomitant]
     Indication: PROPHYLAXIS OF NAUSEA AND VOMITING
     Route: 048
     Dates: start: 20100809
  5. ALOXI [Concomitant]
     Indication: PREMEDICATION
     Route: 042
     Dates: start: 20100901
  6. DECADRON [Concomitant]
     Indication: PREMEDICATION
     Dates: start: 20100901
  7. AUGMENTIN '125' [Concomitant]
     Indication: PROPHYLAXIS
     Route: 048
     Dates: start: 20100929, end: 20101008
  8. GRANISETRON HCL [Concomitant]
     Indication: NAUSEA
     Dates: start: 20100929

REACTIONS (2)
  - CELLULITIS [None]
  - DEEP VEIN THROMBOSIS [None]
